FAERS Safety Report 7965915-6 (Version None)
Quarter: 2011Q4

REPORT INFORMATION
  Report Type: 
  Country: None (occurrence: None)
  Receive Date: 20111208
  Receipt Date: 20111128
  Transmission Date: 20120403
  Serious: Yes (Hospitalization)
  Sender: FDA-Public Use
  Company Number: GB-GLAXOSMITHKLINE-B0765768A

PATIENT
  Sex: Female

DRUGS (38)
  1. POTASSIUM CHLORIDE [Suspect]
     Route: 048
     Dates: start: 20090701
  2. AMLODIPINE [Concomitant]
  3. LEVOTHYROXINE SODIUM [Concomitant]
     Dates: start: 20090101
  4. SUCRALFATE [Suspect]
     Dosage: 4G PER DAY
     Route: 048
  5. METOLAZONE [Concomitant]
     Dates: start: 20090101
  6. METOPROLOL SUCCINATE [Concomitant]
  7. OMEPRAZOLE [Concomitant]
     Dates: start: 20090501
  8. SALMETEROL + FLUTICASONE [Suspect]
     Route: 054
     Dates: start: 20090513
  9. DICYCLOMINE HCL [Suspect]
     Dosage: 40MG PER DAY
     Route: 048
     Dates: start: 20090501
  10. ACETAMINOPHEN [Concomitant]
     Dates: start: 20090101
  11. LEVALBUTEROL HCL [Concomitant]
     Dates: start: 20090101
  12. MEMANTINE [Concomitant]
     Dates: start: 20090101
  13. VITAMIN D [Concomitant]
     Dates: start: 20090101
  14. CARISOPRODOL [Suspect]
     Dosage: 1000MG PER DAY
  15. ASPIRIN [Concomitant]
     Dates: start: 20090501
  16. TERIPARATIDE [Concomitant]
     Dates: start: 20090101
  17. DIGOXIN [Suspect]
     Route: 048
  18. PREDNISONE TAB [Suspect]
     Route: 048
  19. LORAZEPAM [Suspect]
     Indication: SLEEP DISORDER
     Route: 048
  20. ESOMEPRAZOLE SODIUM [Concomitant]
     Dates: start: 20090501
  21. PSYLLIUM [Concomitant]
     Dates: start: 20090101
  22. METOPROLOL TARTRATE [Concomitant]
     Dates: start: 20090101
  23. PHENOXYBENZAMINE [Concomitant]
     Dates: start: 20090101
  24. ACETAMINOPHEN [Concomitant]
  25. ROSUVASTATIN [Concomitant]
  26. HYDROCODONE [Concomitant]
  27. FUROSEMIDE [Suspect]
  28. METAXALONE [Suspect]
     Dosage: 1600MG PER DAY
     Route: 048
  29. DIGOXIN [Suspect]
     Route: 048
  30. POTASSIUM CHLORIDE [Suspect]
     Dosage: 40IUAX PER DAY
     Route: 048
     Dates: start: 20090901
  31. ATROPINE + DIPHENOXYLATE [Suspect]
     Indication: DIARRHOEA
     Route: 048
  32. DICYCLOMINE HCL [Suspect]
     Dosage: 40MG PER DAY
     Route: 048
     Dates: start: 20090701, end: 20090801
  33. LORAZEPAM [Suspect]
     Dosage: .5MG PER DAY
     Route: 048
     Dates: start: 20090501
  34. CALCIUM + VITAMIN D [Concomitant]
  35. EZETIMIBE [Concomitant]
  36. FENTANYL [Concomitant]
     Dates: start: 20090101
  37. SACCHAROMYCES BOULARDII [Concomitant]
     Dates: start: 20090101
  38. MULTI-VITAMIN [Concomitant]

REACTIONS (7)
  - DEPRESSION [None]
  - DELIRIUM [None]
  - DEHYDRATION [None]
  - VISUAL IMPAIRMENT [None]
  - URINARY TRACT INFECTION [None]
  - WEIGHT DECREASED [None]
  - CONSTIPATION [None]
